FAERS Safety Report 5956081-7 (Version None)
Quarter: 2008Q4

REPORT INFORMATION
  Report Type: 
  Country: None (occurrence: None)
  Receive Date: 20081118
  Receipt Date: 20081112
  Transmission Date: 20090506
  Serious: Yes (Hospitalization)
  Sender: FDA-Public Use
  Company Number: FR-JNJFOC-20081102822

PATIENT
  Age: 75 Year
  Sex: Female

DRUGS (7)
  1. OFLOCET [Suspect]
     Route: 001
  2. OFLOCET [Suspect]
     Indication: EAR INFECTION
     Route: 001
  3. VANCOMYCIN [Suspect]
     Indication: EAR INFECTION
     Route: 042
  4. TICARPEN [Suspect]
     Indication: EAR INFECTION
     Route: 042
  5. CIPROFLOXACIN HYDROCHLORIDE [Suspect]
     Indication: EAR INFECTION
     Route: 042
  6. ATARAX [Suspect]
     Indication: DRUG USE FOR UNKNOWN INDICATION
     Route: 048
  7. ZOLPIDEM [Suspect]
     Indication: DRUG USE FOR UNKNOWN INDICATION
     Route: 048

REACTIONS (1)
  - DRUG RASH WITH EOSINOPHILIA AND SYSTEMIC SYMPTOMS [None]
